FAERS Safety Report 5671068-X (Version None)
Quarter: 2008Q1

REPORT INFORMATION
  Report Type: 
  Country: None (occurrence: None)
  Receive Date: 20080317
  Receipt Date: 20080317
  Transmission Date: 20080703
  Serious: Yes (Hospitalization)
  Sender: FDA-Public Use
  Company Number: None

PATIENT
  Age: 8 Year
  Sex: Female
  Weight: 25.4014 kg

DRUGS (4)
  1. AZITHROMYCIN [Suspect]
     Indication: PNEUMONIA
     Dosage: 1 1/2 TEASPOON 1ST DAY
     Dates: start: 20080215
  2. AZITHROMYCIN [Suspect]
     Indication: PNEUMONIA
     Dosage: 1 1/2 TEASPOON 1ST DAY
     Dates: start: 20080216
  3. AZITHROMYCIN [Suspect]
     Indication: PNEUMONIA
     Dosage: 1 1/2 TEASPOON 1ST DAY
     Dates: start: 20080217
  4. ZITHROMAX [Suspect]
     Dosage: 3/4 TEASPOON DAILY FOR 7 DAYS

REACTIONS (1)
  - STEVENS-JOHNSON SYNDROME [None]
